FAERS Safety Report 18296717 (Version 2)
Quarter: 2020Q4

REPORT INFORMATION
  Report Type: Spontaneous
  Country: JP (occurrence: JP)
  Receive Date: 20200922
  Receipt Date: 20201127
  Transmission Date: 20210113
  Serious: Yes (Hospitalization, Other)
  Sender: FDA-Public Use
  Company Number: JP-PFIZER INC-2020362441

PATIENT
  Age: 75 Year
  Sex: Female

DRUGS (1)
  1. SUTENT [Suspect]
     Active Substance: SUNITINIB MALATE
     Indication: GASTROINTESTINAL STROMAL TUMOUR
     Dosage: 50 MG, 1X/DAY
     Route: 048
     Dates: start: 20200518, end: 20200623

REACTIONS (11)
  - White blood cell count decreased [Unknown]
  - Blood creatine phosphokinase increased [Unknown]
  - Apathy [Unknown]
  - Blood lactate dehydrogenase increased [Unknown]
  - Cerebral artery embolism [Not Recovered/Not Resolved]
  - Cerebral infarction [Unknown]
  - Blood pressure increased [Unknown]
  - High density lipoprotein increased [Unknown]
  - Monocyte count increased [Unknown]
  - Blood urea increased [Unknown]
  - Platelet count decreased [Unknown]

NARRATIVE: CASE EVENT DATE: 20200623
